FAERS Safety Report 8586626-2 (Version None)
Quarter: 2012Q3

REPORT INFORMATION
  Report Type: 
  Country: None (occurrence: None)
  Receive Date: 20120810
  Receipt Date: 20120802
  Transmission Date: 20120928
  Serious: Yes (Hospitalization, Other)
  Sender: FDA-Public Use
  Company Number: US-ABBOTT-12P-163-0963746-00

PATIENT
  Sex: Female
  Weight: 54.48 kg

DRUGS (7)
  1. HUMIRA [Suspect]
     Indication: RHEUMATOID ARTHRITIS
     Dates: start: 20120606, end: 20120717
  2. ALBUTEROL [Concomitant]
     Indication: ASTHMA
     Route: 055
  3. LISINOPRIL [Concomitant]
     Indication: PRODUCT USED FOR UNKNOWN INDICATION
  4. METHOTREXATE [Concomitant]
     Indication: RHEUMATOID ARTHRITIS
  5. HUMIRA [Suspect]
  6. FOLIC ACID [Concomitant]
     Indication: RHEUMATOID ARTHRITIS
  7. NORVASC [Concomitant]
     Indication: HYPERTENSION

REACTIONS (7)
  - PNEUMONIA [None]
  - COUGH [None]
  - DIZZINESS [None]
  - PYREXIA [None]
  - DYSPNOEA [None]
  - WEIGHT DECREASED [None]
  - CHEST DISCOMFORT [None]
